FAERS Safety Report 17365010 (Version 3)
Quarter: 2020Q2

REPORT INFORMATION
  Report Type: Spontaneous
  Country: JP (occurrence: JP)
  Receive Date: 20200204
  Receipt Date: 20200403
  Transmission Date: 20200713
  Serious: Yes (Death, Hospitalization, Other)
  Sender: FDA-Public Use
  Company Number: JP-BRISTOL-MYERS SQUIBB COMPANY-BMS-2020-008116

PATIENT
  Age: 90 Year
  Sex: Male

DRUGS (19)
  1. PREDONINE [Concomitant]
     Active Substance: PREDNISOLONE
     Indication: PRODUCT USED FOR UNKNOWN INDICATION
     Dosage: 5 MILLIGRAM, QD
     Route: 065
     Dates: start: 201908, end: 201909
  2. LASIX [Concomitant]
     Active Substance: FUROSEMIDE
     Indication: PRODUCT USED FOR UNKNOWN INDICATION
     Dosage: 20 MILLIGRAM, QD
     Route: 065
     Dates: start: 201902, end: 201909
  3. RESTAMIN KOWA [Concomitant]
     Indication: PRODUCT USED FOR UNKNOWN INDICATION
     Dosage: 30 GRAM
     Route: 065
     Dates: start: 201906, end: 201909
  4. CAMPHOR [Concomitant]
     Active Substance: CAMPHOR
     Indication: PRODUCT USED FOR UNKNOWN INDICATION
     Dosage: SEVERAL TIMES DAILY
     Route: 061
     Dates: start: 201906, end: 201909
  5. DIART [Concomitant]
     Active Substance: AZOSEMIDE
     Indication: PRODUCT USED FOR UNKNOWN INDICATION
     Dosage: 60 MILLIGRAM, QD
     Route: 065
     Dates: start: 201607, end: 201609
  6. PREDONINE [Concomitant]
     Active Substance: PREDNISOLONE
     Indication: PRODUCT USED FOR UNKNOWN INDICATION
     Dosage: 5 MILLIGRAM, QD
     Route: 065
     Dates: start: 201609, end: 201809
  7. SIGMART [Concomitant]
     Active Substance: NICORANDIL
     Indication: PRODUCT USED FOR UNKNOWN INDICATION
     Dosage: 5 MILLIGRAM, TID
     Route: 065
     Dates: start: 201209, end: 201909
  8. ALESION [Concomitant]
     Active Substance: EPINASTINE HYDROCHLORIDE
     Indication: PRODUCT USED FOR UNKNOWN INDICATION
     Dosage: 20 MILLIGRAM, QD
     Route: 065
     Dates: start: 201812, end: 201909
  9. BELSOMRA [Concomitant]
     Active Substance: SUVOREXANT
     Indication: PRODUCT USED FOR UNKNOWN INDICATION
     Dosage: 15 MILLIGRAM, BID
     Route: 065
     Dates: start: 201804, end: 201909
  10. GASMOTIN [Concomitant]
     Active Substance: MOSAPRIDE CITRATE
     Indication: PRODUCT USED FOR UNKNOWN INDICATION
     Dosage: 5 MILLIGRAM, TID (ORALLY AFTER EVERY MEAL FOR 14 DAYS)
     Route: 048
     Dates: start: 201305, end: 201909
  11. ELIQUIS [Suspect]
     Active Substance: APIXABAN
     Indication: CEREBROVASCULAR ACCIDENT PROPHYLAXIS
     Dosage: 2.5 MILLIGRAM, BID, AFTER BREAKFAST AND SUPPER
     Route: 065
     Dates: start: 201707, end: 201909
  12. ALDACTONE-A [Concomitant]
     Active Substance: SPIRONOLACTONE
     Indication: PRODUCT USED FOR UNKNOWN INDICATION
     Dosage: 25 MILLIGRAM, QD
     Route: 065
     Dates: start: 201902, end: 201909
  13. DARBEPOETIN ALFA [Concomitant]
     Active Substance: DARBEPOETIN ALFA
     Indication: PRODUCT USED FOR UNKNOWN INDICATION
     Dosage: 1 TUBE
     Route: 065
     Dates: start: 201905, end: 201909
  14. PLAVIX [Concomitant]
     Active Substance: CLOPIDOGREL BISULFATE
     Indication: PRODUCT USED FOR UNKNOWN INDICATION
     Dosage: 25 MILLIGRAM, QD
     Route: 065
     Dates: start: 201607, end: 201909
  15. MENTHOL [LEVOMENTHOL] [Concomitant]
     Active Substance: LEVOMENTHOL
     Indication: PRODUCT USED FOR UNKNOWN INDICATION
     Dosage: 1.5 GRAM
     Route: 065
     Dates: start: 201906, end: 201909
  16. DIART [Concomitant]
     Active Substance: AZOSEMIDE
     Indication: PRODUCT USED FOR UNKNOWN INDICATION
     Dosage: UNK UNK, QD
     Route: 065
     Dates: start: 201905
  17. TAKEPRON [Concomitant]
     Active Substance: LANSOPRAZOLE
     Indication: PRODUCT USED FOR UNKNOWN INDICATION
     Dosage: 15 MILLIGRAM, QD (QD AFTER BREAKFAST FOR 14 DAYS)
     Route: 048
     Dates: start: 201208, end: 201909
  18. ENEVO [Concomitant]
     Indication: PRODUCT USED FOR UNKNOWN INDICATION
     Dosage: UNK, QD, AFTER LUNCH FOR 14 DAYS
     Route: 065
     Dates: start: 201609, end: 201909
  19. PURSENNID EX-LAX [SENNOSIDE A+B] [Concomitant]
     Indication: PRODUCT USED FOR UNKNOWN INDICATION
     Dosage: 12 MILLIGRAM, QD (BEFORE BEDTIME FOR 14 DAYS)
     Route: 048
     Dates: start: 201011, end: 201909

REACTIONS (2)
  - Fall [Unknown]
  - Lacunar infarction [Fatal]

NARRATIVE: CASE EVENT DATE: 20190923
